FAERS Safety Report 22279929 (Version 1)
Quarter: 2023Q2

REPORT INFORMATION
  Report Type: Spontaneous
  Country: ES (occurrence: None)
  Receive Date: 20230503
  Receipt Date: 20230503
  Transmission Date: 20230722
  Serious: Yes (Other)
  Sender: FDA-Public Use
  Company Number: 2023A095537

PATIENT
  Age: 49 Year
  Sex: Female

DRUGS (3)
  1. FULVESTRANT [Suspect]
     Active Substance: FULVESTRANT
     Indication: Breast cancer metastatic
     Dosage: 500 UNK
     Dates: start: 201804
  2. PALBOCICLIB [Suspect]
     Active Substance: PALBOCICLIB
     Indication: Breast cancer metastatic
     Dosage: UNK
     Dates: start: 201804
  3. ZOLADEX [Concomitant]
     Active Substance: GOSERELIN ACETATE
     Indication: Breast cancer metastatic
     Dosage: UNK
     Dates: start: 201804

REACTIONS (1)
  - Haematotoxicity [Unknown]

NARRATIVE: CASE EVENT DATE: 20180601
